FAERS Safety Report 5060129-4 (Version None)
Quarter: 2006Q3

REPORT INFORMATION
  Report Type: 
  Country: None (occurrence: None)
  Receive Date: 20060719
  Receipt Date: 20060707
  Transmission Date: 20061208
  Serious: Yes (Death)
  Sender: FDA-Public Use
  Company Number: HQWYE840712JUL06

PATIENT
  Age: 51 Year
  Sex: Female

DRUGS (3)
  1. TYGACIL [Suspect]
     Indication: INFECTION
     Dosage: 100 MG LOAD, 50 MG EVERY 12  HOURS INTRAVENOUS
     Route: 042
     Dates: start: 20060614, end: 20060101
  2. FLUCONAZOLE [Concomitant]
  3. NEOSTIGMINE (NEOSTIGMINE) [Concomitant]

REACTIONS (1)
  - RASH [None]
